FAERS Safety Report 21800927 (Version 1)
Quarter: 2022Q4

REPORT INFORMATION
  Report Type: Report from Study
  Country: US (occurrence: US)
  Receive Date: 20221230
  Receipt Date: 20221230
  Transmission Date: 20230113
  Serious: Yes (Other)
  Sender: FDA-Public Use
  Company Number: US-THERAPEUTICSMD-2022TMD01134

PATIENT
  Sex: Female

DRUGS (1)
  1. IMVEXXY [Suspect]
     Active Substance: ESTRADIOL
     Dosage: 4 ?G, 3X/WEEK AT NIGHT
     Route: 067

REACTIONS (4)
  - Pancreatitis [Unknown]
  - Pancreatic enzymes decreased [Not Recovered/Not Resolved]
  - Diarrhoea [Unknown]
  - Off label use [Unknown]
